FAERS Safety Report 15648742 (Version 7)
Quarter: 2021Q3

REPORT INFORMATION
  Report Type: Report from Study
  Country: JP (occurrence: JP)
  Receive Date: 20181122
  Receipt Date: 20210805
  Transmission Date: 20211014
  Serious: Yes (Hospitalization)
  Sender: FDA-Public Use
  Company Number: JP-OTSUKA-2017_022576AA

PATIENT
  Age: 59 Year
  Sex: Male
  Weight: 64.8 kg

DRUGS (9)
  1. ATELEC [Concomitant]
     Active Substance: CILNIDIPINE
     Indication: PRODUCT USED FOR UNKNOWN INDICATION
     Dosage: 20 MG, QD
     Route: 048
  2. ALLOPURINOL. [Concomitant]
     Active Substance: ALLOPURINOL
     Indication: PRODUCT USED FOR UNKNOWN INDICATION
     Dosage: 100 MG, QD
     Route: 048
     Dates: end: 20190329
  3. TOLVAPTAN [Suspect]
     Active Substance: TOLVAPTAN
     Indication: CONGENITAL CYSTIC KIDNEY DISEASE
     Dosage: 37.5MG/DAY, DIVIDED TWO DOSES (EACH DOSE UNKNOWN)
     Route: 048
     Dates: start: 20151023, end: 20151217
  4. TOLVAPTAN [Suspect]
     Active Substance: TOLVAPTAN
     Dosage: 30 MG/DAY, DIVIDED TWO DOSES (EACH DOSE UNKNOWN)
     Route: 048
     Dates: start: 20161126
  5. TOLVAPTAN [Suspect]
     Active Substance: TOLVAPTAN
     Dosage: 22.5MG/DAY, DIVIDED 2 DOSES (EACH DOSE UNKNOWN)
     Route: 048
     Dates: start: 20150717, end: 20151022
  6. AZILVA [Concomitant]
     Active Substance: AZILSARTAN KAMEDOXOMIL
     Indication: PRODUCT USED FOR UNKNOWN INDICATION
     Dosage: 20 MG, QD
     Route: 048
  7. ATORVASTATIN [ATORVASTATIN CALCIUM] [Concomitant]
     Active Substance: ATORVASTATIN CALCIUM
     Indication: PRODUCT USED FOR UNKNOWN INDICATION
     Dosage: 5 MG, QD
     Route: 048
  8. CARDENALIN [Concomitant]
     Active Substance: DOXAZOSIN MESYLATE
     Indication: PRODUCT USED FOR UNKNOWN INDICATION
     Dosage: 4 MG, QD
     Route: 048
  9. TOLVAPTAN [Suspect]
     Active Substance: TOLVAPTAN
     Dosage: 22.5MG/DAY, DIVIDED TWO DOSES (EACH DOSE UNKNOWN)
     Route: 048
     Dates: start: 20151218, end: 20161125

REACTIONS (3)
  - Nausea [Recovering/Resolving]
  - Decreased appetite [Recovering/Resolving]
  - Abdominal distension [Recovering/Resolving]

NARRATIVE: CASE EVENT DATE: 20151218
